FAERS Safety Report 6476632-6 (Version None)
Quarter: 2009Q4

REPORT INFORMATION
  Report Type: 
  Country: None (occurrence: None)
  Receive Date: 20091207
  Receipt Date: 20091127
  Transmission Date: 20100525
  Serious: Yes (Hospitalization)
  Sender: FDA-Public Use
  Company Number: FR-EISAI INC.-E7273-00116-SPO-FR

PATIENT
  Sex: Female

DRUGS (6)
  1. TARGRETIN [Suspect]
     Route: 048
     Dates: start: 20090201, end: 20090701
  2. NOVATREX [Concomitant]
     Route: 042
     Dates: start: 20060501
  3. LEVOTYROX [Concomitant]
     Indication: HYPOTHYROIDISM
     Route: 048
  4. LIPANTHYL [Concomitant]
     Indication: DYSLIPIDAEMIA
     Route: 048
     Dates: start: 20090501
  5. COAPROVEL [Concomitant]
     Dosage: UNKNOWN
     Route: 048
     Dates: end: 20090801
  6. SPECIAFOLDINE [Concomitant]
     Indication: ANAEMIA
     Dosage: UNKNOWN
     Route: 048

REACTIONS (1)
  - CHOLESTASIS [None]
